FAERS Safety Report 13608106 (Version 1)
Quarter: 2017Q2

REPORT INFORMATION
  Report Type: Spontaneous
  Country: BR (occurrence: BR)
  Receive Date: 20170602
  Receipt Date: 20170602
  Transmission Date: 20170830
  Serious: No
  Sender: FDA-Public Use
  Company Number: BR-FTV20170207-02

PATIENT
  Age: 18 Year
  Sex: Female

DRUGS (1)
  1. FACTIVE [Suspect]
     Active Substance: GEMIFLOXACIN MESYLATE
     Indication: PHARYNGITIS
     Dates: start: 20160121, end: 20160125

REACTIONS (3)
  - Off label use [Unknown]
  - Hypersensitivity [Recovered/Resolved]
  - Seizure [Recovered/Resolved]

NARRATIVE: CASE EVENT DATE: 20160121
